FAERS Safety Report 4617268-9 (Version None)
Quarter: 2005Q1

REPORT INFORMATION
  Report Type: 
  Country: None (occurrence: None)
  Receive Date: 20050323
  Receipt Date: 20050318
  Transmission Date: 20050727
  Serious: Yes (Disabling, Other)
  Sender: FDA-Public Use
  Company Number: US-MERCK-0503USA03448

PATIENT
  Age: 65 Year
  Sex: Male

DRUGS (6)
  1. PLETAL [Concomitant]
     Route: 065
  2. ZOCOR [Suspect]
     Indication: BLOOD CHOLESTEROL INCREASED
     Route: 048
     Dates: start: 20020301, end: 20050222
  3. HYDROCODONE BITARTRATE [Concomitant]
     Route: 065
  4. MS CONTIN [Concomitant]
     Route: 065
  5. DIOVAN [Concomitant]
     Route: 065
  6. BISOPROLOL [Concomitant]
     Route: 065

REACTIONS (3)
  - ARTERIAL BYPASS OPERATION [None]
  - ARTERIAL DISORDER [None]
  - MYALGIA [None]
